FAERS Safety Report 5138434-2 (Version None)
Quarter: 2006Q4

REPORT INFORMATION
  Report Type: 
  Country: None (occurrence: None)
  Receive Date: 20061030
  Receipt Date: 20060223
  Transmission Date: 20070319
  Serious: No
  Sender: FDA-Public Use
  Company Number: US-GLAXOSMITHKLINE-A0594963A

PATIENT
  Age: 75 Year
  Sex: Female

DRUGS (4)
  1. ADVAIR HFA [Suspect]
     Indication: EMPHYSEMA
     Dosage: 1PUFF TWICE PER DAY
     Route: 055
     Dates: start: 20051101
  2. DIGOXIN [Concomitant]
  3. COUMADIN [Concomitant]
  4. SOTALOL HYDROCHLORIDE [Concomitant]

REACTIONS (3)
  - CANDIDIASIS [None]
  - LARYNGITIS [None]
  - ORAL PAIN [None]
